FAERS Safety Report 5444058-X (Version None)
Quarter: 2007Q3

REPORT INFORMATION
  Report Type: 
  Country: None (occurrence: None)
  Receive Date: 20070831
  Receipt Date: 20070817
  Transmission Date: 20080115
  Serious: Yes (Death, Hospitalization)
  Sender: FDA-Public Use
  Company Number: POMP-11154

PATIENT
  Age: 53 Year
  Sex: Female

DRUGS (1)
  1. MYOZYME [Suspect]
     Indication: GLYCOGEN STORAGE DISEASE TYPE II
     Dosage: 1400 MG Q2WKS IV
     Route: 042
     Dates: start: 20070101, end: 20070801

REACTIONS (5)
  - CATATONIA [None]
  - COLLAPSE OF LUNG [None]
  - PNEUMONIA [None]
  - RESPIRATORY ARREST [None]
  - SINUSITIS [None]
